FAERS Safety Report 7421255-5 (Version None)
Quarter: 2011Q2

REPORT INFORMATION
  Report Type: 
  Country: None (occurrence: None)
  Receive Date: 20110418
  Receipt Date: 20110413
  Transmission Date: 20111010
  Serious: Yes (Life-Threatening, Other)
  Sender: FDA-Public Use
  Company Number: JP-PFIZER INC-2011066189

PATIENT
  Age: 63 Year
  Sex: Male
  Weight: 50 kg

DRUGS (10)
  1. PANVITAN [Concomitant]
  2. LENDORMIN [Concomitant]
     Indication: INSOMNIA
     Dosage: 0.25 MG, 1X/DAY
     Route: 048
     Dates: start: 20110212
  3. LYRICA [Suspect]
     Indication: HYPOAESTHESIA
     Dosage: 75MG DAILY
     Route: 048
     Dates: start: 20110323, end: 20110323
  4. MUCOSTA [Concomitant]
  5. TEGRETOL [Concomitant]
     Indication: METASTASES TO CENTRAL NERVOUS SYSTEM
     Dosage: 100 MG, 1X/DAY
     Route: 048
     Dates: start: 20110112
  6. OXYCONTIN [Concomitant]
     Indication: PAIN
     Dosage: 5 MG, 2X/DAY
     Route: 048
     Dates: start: 20110323
  7. LOXONIN [Concomitant]
  8. ALIMTA [Concomitant]
  9. WARFARIN [Concomitant]
     Indication: PULMONARY EMBOLISM
     Dosage: 1 DF, 1X/DAY
     Route: 048
     Dates: start: 20100701
  10. NOVAMIN [Concomitant]
     Indication: NAUSEA
     Dosage: 5 MG, 3X/DAY
     Route: 048
     Dates: start: 20110320

REACTIONS (1)
  - ANAPHYLACTIC SHOCK [None]
